FAERS Safety Report 10884226 (Version 1)
Quarter: 2015Q1

REPORT INFORMATION
  Report Type: Spontaneous
  Country: US (occurrence: US)
  Receive Date: 20150304
  Receipt Date: 20150304
  Transmission Date: 20150721
  Serious: Yes (Hospitalization)
  Sender: FDA-Public Use
  Company Number: US-AMGEN-USASP2015019409

PATIENT
  Age: 71 Year
  Sex: Female

DRUGS (1)
  1. ENBREL [Suspect]
     Active Substance: ETANERCEPT
     Indication: PSORIASIS
     Dosage: 50 MG, QWK
     Route: 065
     Dates: start: 20141003

REACTIONS (9)
  - Wrong technique in drug usage process [Not Recovered/Not Resolved]
  - Arthralgia [Recovered/Resolved]
  - Thrombosis [Recovered/Resolved]
  - Bursitis [Recovered/Resolved]
  - Injection site extravasation [Not Recovered/Not Resolved]
  - Atrial fibrillation [Not Recovered/Not Resolved]
  - Pain in extremity [Recovered/Resolved]
  - Joint swelling [Recovered/Resolved]
  - Chondropathy [Not Recovered/Not Resolved]

NARRATIVE: CASE EVENT DATE: 2014
